FAERS Safety Report 18807252 (Version 1)
Quarter: 2021Q1

REPORT INFORMATION
  Report Type: Spontaneous
  Country: CA (occurrence: CA)
  Receive Date: 20210128
  Receipt Date: 20210128
  Transmission Date: 20210419
  Serious: Yes (Hospitalization)
  Sender: FDA-Public Use
  Company Number: CA-TEVA-2021-CA-1871718

PATIENT
  Age: 2 Year
  Sex: Female

DRUGS (9)
  1. METHOTREXATE INJECTION BP WITHOUT PRESERVATIVE (40 MLSINGLE?USE VIALS) [Suspect]
     Active Substance: METHOTREXATE
     Route: 065
  2. MERCAPTOPURINE. [Concomitant]
     Active Substance: MERCAPTOPURINE
  3. CLOTRIMAZOLE CREAM USP 1% [Concomitant]
  4. CHOLECALCIFEROL [Concomitant]
     Active Substance: CHOLECALCIFEROL
  5. ZINC OXIDE. [Concomitant]
     Active Substance: ZINC OXIDE
  6. VINCRISTINE SULPHATE INJECTION?LIQ IV 1MG/ML [Suspect]
     Active Substance: VINCRISTINE SULFATE
     Route: 065
  7. ONDANSETRON [Concomitant]
     Active Substance: ONDANSETRON
  8. POLYETHYLENE GLYCOL 3350. [Concomitant]
     Active Substance: POLYETHYLENE GLYCOL 3350
  9. SULFAMETHOXAZOLE AND TRIMETHOPRIM [Concomitant]
     Active Substance: SULFAMETHOXAZOLE\TRIMETHOPRIM
     Dosage: SUSPENSION

REACTIONS (1)
  - Febrile neutropenia [Recovered/Resolved]
